FAERS Safety Report 4803272-4 (Version None)
Quarter: 2005Q4

REPORT INFORMATION
  Report Type: 
  Country: None (occurrence: None)
  Receive Date: 20051013
  Receipt Date: 20051006
  Transmission Date: 20060501
  Serious: Yes (Other)
  Sender: FDA-Public Use
  Company Number: 2005134034

PATIENT
  Age: 58 Year
  Sex: Female

DRUGS (4)
  1. CADUET [Suspect]
     Indication: HYPERLIPIDAEMIA
     Dosage: 10/20 MG (1 IN 1 D), ORAL
     Route: 048
     Dates: start: 20050901, end: 20050901
  2. CADUET [Suspect]
     Indication: HYPERTENSION
     Dosage: 10/20 MG (1 IN 1 D), ORAL
     Route: 048
     Dates: start: 20050901, end: 20050901
  3. NORVASC [Suspect]
     Indication: ILL-DEFINED DISORDER
     Dates: start: 19991001
  4. ASPIRIN [Concomitant]

REACTIONS (3)
  - HYPERLIPIDAEMIA [None]
  - HYPOKALAEMIA [None]
  - STEVENS-JOHNSON SYNDROME [None]
